FAERS Safety Report 6355359-5 (Version None)
Quarter: 2009Q3

REPORT INFORMATION
  Report Type: 
  Country: None (occurrence: None)
  Receive Date: 20090914
  Receipt Date: 20090903
  Transmission Date: 20100115
  Serious: Yes (Life-Threatening, Hospitalization)
  Sender: FDA-Public Use
  Company Number: ES-BAXTER-2009BH013918

PATIENT
  Age: 69 Year
  Sex: Female
  Weight: 55 kg

DRUGS (6)
  1. ENDOXAN BAXTER [Suspect]
     Indication: VASCULITIS
     Route: 042
     Dates: start: 20070214, end: 20070214
  2. URBASON [Suspect]
     Indication: IMMUNOSUPPRESSION
     Route: 042
     Dates: start: 20070214, end: 20070216
  3. TAVANIC [Suspect]
     Indication: RESPIRATORY TRACT INFECTION
     Route: 042
     Dates: start: 20070214, end: 20070223
  4. CEFTRIAXONE [Suspect]
     Indication: RESPIRATORY TRACT INFECTION
     Route: 042
     Dates: start: 20070214, end: 20070223
  5. ACETAMINOPHEN [Suspect]
     Indication: PAIN
     Route: 042
     Dates: start: 20070214, end: 20070307
  6. TRAMADOL HCL [Suspect]
     Indication: PAIN
     Route: 042
     Dates: start: 20070214, end: 20070310

REACTIONS (1)
  - CARDIOMYOPATHY [None]
